FAERS Safety Report 19511756 (Version 1)
Quarter: 2021Q3

REPORT INFORMATION
  Report Type: Spontaneous
  Country: DE (occurrence: DE)
  Receive Date: 20210709
  Receipt Date: 20210709
  Transmission Date: 20211014
  Serious: Yes (Hospitalization)
  Sender: FDA-Public Use
  Company Number: DE-SA-2021SA218809

PATIENT
  Age: 73 Year
  Sex: Female

DRUGS (5)
  1. APIXABAN [Suspect]
     Active Substance: APIXABAN
     Dosage: 5 MG, BID (5 MG, 1?0?1?0, TABLETS)
     Route: 048
  2. PANTOPRAZOLE [Concomitant]
     Active Substance: PANTOPRAZOLE
     Dosage: 40 MG, QD (40 MG, 1?0?0?0, TABLETS )
     Route: 048
  3. NUSTENDI [Concomitant]
     Active Substance: BEMPEDOIC ACID\EZETIMIBE
     Dosage: UNK MG, QD (10 | 180 MG, ONCE A DAY, TABLETS)
     Route: 048
  4. CLOPIDOGREL BISULFATE. [Suspect]
     Active Substance: CLOPIDOGREL BISULFATE
     Dosage: 75 MG, QD (75 MG, 1?0?0?0, TABLETS)
     Route: 048
  5. CANDESARTAN. [Concomitant]
     Active Substance: CANDESARTAN
     Dosage: 16 MG, QD (16 MG, 1?0?0?0, TABLETS)
     Route: 048

REACTIONS (4)
  - Hypotension [Recovering/Resolving]
  - Swelling [Recovering/Resolving]
  - Haematoma [Recovering/Resolving]
  - Vascular pseudoaneurysm [Recovering/Resolving]
